FAERS Safety Report 8111834-4 (Version None)
Quarter: 2011Q4

REPORT INFORMATION
  Report Type: 
  Country: None (occurrence: None)
  Receive Date: 20111223
  Receipt Date: 20110119
  Transmission Date: 20120403
  Serious: Yes (Other)
  Sender: FDA-Public Use
  Company Number: PHHY2011US04060

PATIENT
  Sex: Female

DRUGS (2)
  1. CLOZARIL [Suspect]
  2. DEPAKOTE [Suspect]
     Indication: BIPOLAR DISORDER

REACTIONS (1)
  - NEUTROPENIA [None]
